FAERS Safety Report 8865911 (Version 1)
Quarter: 2012Q4

REPORT INFORMATION
  Report Type: 
  Country: US (occurrence: US)
  Receive Date: 20121025
  Receipt Date: 20121025
  Transmission Date: 20130627
  Serious: No
  Sender: FDA-Public Use
  Company Number: US-009507513-1210USA007491

PATIENT
  Age: 69 Year
  Sex: Female

DRUGS (1)
  1. JANUMET XR [Suspect]
     Indication: TYPE 2 DIABETES MELLITUS
     Dosage: 1000mg/50mg, once daily
     Route: 048
     Dates: start: 201209

REACTIONS (1)
  - Diarrhoea [Recovering/Resolving]
